FAERS Safety Report 5988156-0 (Version None)
Quarter: 2008Q4

REPORT INFORMATION
  Report Type: 
  Country: None (occurrence: None)
  Receive Date: 20081208
  Receipt Date: 20081208
  Transmission Date: 20090506
  Serious: Yes (Other)
  Sender: FDA-Public Use
  Company Number: None

PATIENT
  Sex: Female
  Weight: 52.4812 kg

DRUGS (2)
  1. TACROLIMUS [Suspect]
     Indication: ACUTE GRAFT VERSUS HOST DISEASE IN SKIN
  2. TACROLIMUS [Suspect]
     Indication: DIARRHOEA

REACTIONS (4)
  - BLINDNESS TRANSIENT [None]
  - INFUSION RELATED REACTION [None]
  - REVERSIBLE POSTERIOR LEUKOENCEPHALOPATHY SYNDROME [None]
  - THERAPEUTIC AGENT TOXICITY [None]
